FAERS Safety Report 7154161-4 (Version None)
Quarter: 2010Q4

REPORT INFORMATION
  Report Type: 
  Country: None (occurrence: None)
  Receive Date: 20101213
  Receipt Date: 20101202
  Transmission Date: 20110411
  Serious: Yes (Hospitalization)
  Sender: FDA-Public Use
  Company Number: FR-PFIZER INC-2010165736

PATIENT
  Age: 50 Year
  Sex: Male

DRUGS (7)
  1. ANSATIPINE [Suspect]
     Indication: PULMONARY TUBERCULOSIS
     Dosage: UNK
     Route: 048
     Dates: start: 20100824, end: 20100923
  2. REYATAZ [Suspect]
     Indication: ACQUIRED IMMUNODEFICIENCY SYNDROME
     Dosage: UNK
     Route: 048
     Dates: start: 20100915, end: 20100923
  3. KIVEXA [Suspect]
     Indication: ACQUIRED IMMUNODEFICIENCY SYNDROME
     Dosage: 600 MG/300 MG
     Route: 048
     Dates: start: 20100915, end: 20100923
  4. NORVIR [Suspect]
     Indication: ACQUIRED IMMUNODEFICIENCY SYNDROME
     Dosage: UNK
     Route: 048
     Dates: start: 20100915, end: 20100923
  5. PIRILENE [Suspect]
     Indication: PULMONARY TUBERCULOSIS
     Dosage: UNK
     Route: 048
     Dates: start: 20100824, end: 20100923
  6. MYAMBUTOL [Concomitant]
     Indication: PULMONARY TUBERCULOSIS
     Dosage: UNK
     Dates: start: 20100824
  7. RIMIFON [Concomitant]
     Indication: PULMONARY TUBERCULOSIS
     Dosage: UNK
     Dates: start: 20100824

REACTIONS (8)
  - ANGIOEDEMA [None]
  - DYSPHAGIA [None]
  - LARYNGEAL OEDEMA [None]
  - MUCOUS MEMBRANE DISORDER [None]
  - PRODUCTIVE COUGH [None]
  - PYREXIA [None]
  - RASH MACULO-PAPULAR [None]
  - URTICARIA [None]
